FAERS Safety Report 4743508-1 (Version None)
Quarter: 2005Q3

REPORT INFORMATION
  Report Type: 
  Country: None (occurrence: None)
  Receive Date: 20050809
  Receipt Date: 20050727
  Transmission Date: 20060218
  Serious: Yes (Hospitalization)
  Sender: FDA-Public Use
  Company Number: 2005107724

PATIENT
  Age: 80 Year
  Sex: Male

DRUGS (3)
  1. CABERGOLINE [Suspect]
     Indication: ILL-DEFINED DISORDER
  2. LEVODOPA (LEVODOPA) [Concomitant]
  3. COMTAN [Concomitant]

REACTIONS (2)
  - CRACKLES LUNG [None]
  - PLEURAL DISORDER [None]
